FAERS Safety Report 4730506-7 (Version None)
Quarter: 2005Q3

REPORT INFORMATION
  Report Type: 
  Country: None (occurrence: None)
  Receive Date: 20050801
  Receipt Date: 20050721
  Transmission Date: 20060218
  Serious: Yes (Other)
  Sender: FDA-Public Use
  Company Number: PHBS2005JP10749

PATIENT
  Age: 69 Year
  Sex: Male

DRUGS (1)
  1. VOLTAREN [Suspect]
     Indication: OSTEOARTHRITIS
     Route: 062
     Dates: start: 20050622, end: 20050705

REACTIONS (4)
  - APPLICATION SITE DERMATITIS [None]
  - DERMATITIS CONTACT [None]
  - LYMPHADENOPATHY [None]
  - OEDEMA PERIPHERAL [None]
